FAERS Safety Report 8849298 (Version 2)
Quarter: 2012Q4

REPORT INFORMATION
  Report Type: 
  Country: US (occurrence: US)
  Receive Date: 20121019
  Receipt Date: 20121105
  Transmission Date: 20130627
  Serious: Yes (Hospitalization, Other)
  Sender: FDA-Public Use
  Company Number: PHEH2012US016614

PATIENT
  Sex: Male
  Weight: 57.14 kg

DRUGS (5)
  1. GLEEVEC [Suspect]
     Indication: GASTRIC CANCER
     Dosage: 400 mg, QD
     Route: 048
  2. GLEEVEC [Suspect]
     Indication: GASTROINTESTINAL STROMAL TUMOUR
     Dosage: 400 mg, QD
     Route: 048
  3. PRILOSEC [Concomitant]
  4. LEVOTHYROXINE [Concomitant]
  5. PREDNISONE [Concomitant]

REACTIONS (13)
  - Intestinal obstruction [Recovered/Resolved]
  - Abdominal pain [Unknown]
  - Renal atrophy [Unknown]
  - Lactose intolerance [Unknown]
  - Heart rate decreased [Unknown]
  - Renal failure chronic [Unknown]
  - Blood creatinine increased [Unknown]
  - Nausea [Unknown]
  - Decreased appetite [Unknown]
  - Chills [Unknown]
  - Fatigue [Unknown]
  - Asthenia [Unknown]
  - Blood pressure decreased [Recovered/Resolved with Sequelae]
